FAERS Safety Report 6987377-8 (Version None)
Quarter: 2010Q3

REPORT INFORMATION
  Report Type: 
  Country: None (occurrence: None)
  Receive Date: 20100913
  Receipt Date: 20100909
  Transmission Date: 20110219
  Serious: Yes (Death)
  Sender: FDA-Public Use
  Company Number: 018015

PATIENT
  Age: 90 Year
  Sex: Male

DRUGS (6)
  1. ROTIGOTINE (ROTIGOTINE) TRANSDERMAL PATCH, TRANSDERMAL PATCH [Suspect]
     Indication: PARKINSON'S DISEASE
     Dosage: 1 MG QD, EVENINGS, 4 MG
     Route: 062
  2. AMANTADINE HCL [Concomitant]
  3. MULTI-VITAMINS [Concomitant]
  4. DIOVAN [Concomitant]
  5. CLOPIDOGREL [Concomitant]
  6. MADOPAR LT [Concomitant]

REACTIONS (7)
  - AKINESIA [None]
  - DISTURBANCE IN ATTENTION [None]
  - DYSPHAGIA [None]
  - GENERAL PHYSICAL HEALTH DETERIORATION [None]
  - PAIN [None]
  - PNEUMONIA [None]
  - SLEEP DISORDER [None]
